FAERS Safety Report 5282600-2 (Version None)
Quarter: 2007Q1

REPORT INFORMATION
  Report Type: 
  Country: None (occurrence: None)
  Receive Date: 20070326
  Receipt Date: 20070313
  Transmission Date: 20070707
  Serious: Yes (Congenital Anomaly)
  Sender: FDA-Public Use
  Company Number: B0462818A

PATIENT
  Sex: Male
  Weight: 2.903 kg

DRUGS (5)
  1. THORAZINE [Suspect]
     Dosage: TRANSPLACENTARY
     Route: 064
  2. RISPERIDONE [Suspect]
     Dosage: TRANSPLACENTARY
     Route: 064
  3. TROPATEPINE HYDROCHLORIDE (FORMULATION UNKNOWN) (TROPATEPINE HYDROCHLO [Suspect]
     Dosage: TRANSPLACENTARY
     Route: 064
  4. CLORAZEPATE DIPOTASSIUM [Suspect]
     Dosage: TRANSPLACENTARY
     Route: 064
  5. BUPRENORPHINE HCL [Suspect]
     Dosage: TRANSPLACENTARY
     Route: 064

REACTIONS (5)
  - ANOMALY OF EXTERNAL EAR CONGENITAL [None]
  - CONGENITAL ANOMALY [None]
  - DRUG EXPOSURE DURING PREGNANCY [None]
  - DYSMORPHISM [None]
  - OESOPHAGEAL ATRESIA [None]
